FAERS Safety Report 4677516-6 (Version None)
Quarter: 2005Q2

REPORT INFORMATION
  Report Type: 
  Country: None (occurrence: None)
  Receive Date: 20050525
  Receipt Date: 20050525
  Transmission Date: 20051028
  Serious: Yes (Other)
  Sender: FDA-Public Use
  Company Number: None

PATIENT
  Age: 45 Year
  Sex: Male
  Weight: 102.1 kg

DRUGS (5)
  1. CODEINE [Suspect]
  2. ACETAMINOPHEN [Concomitant]
  3. BACITRACIN TOPICAL OINTMENT [Concomitant]
  4. HYDROXYZINE PAMOATE [Concomitant]
  5. RANITIDINE [Concomitant]

REACTIONS (1)
  - RASH [None]
